FAERS Safety Report 9472718 (Version 3)
Quarter: 2013Q4

REPORT INFORMATION
  Report Type: Spontaneous
  Country: US (occurrence: US)
  Receive Date: 20130823
  Receipt Date: 20131015
  Transmission Date: 20140711
  Serious: Yes (Other)
  Sender: FDA-Public Use
  Company Number: US-PFIZER INC-2013231966

PATIENT
  Age: 79 Year
  Sex: Female

DRUGS (3)
  1. PRISTIQ [Suspect]
     Dosage: 50 MG, 1X/DAY
  2. PRISTIQ [Suspect]
     Dosage: 100 MG, 1X/DAY
  3. ZIPRASIDONE [Concomitant]

REACTIONS (7)
  - Systemic lupus erythematosus [Unknown]
  - Fall [Unknown]
  - Gait disturbance [Unknown]
  - Vertigo [Unknown]
  - Constipation [Unknown]
  - Neuropathy peripheral [Unknown]
  - Throat irritation [Unknown]
